FAERS Safety Report 17121843 (Version 6)
Quarter: 2020Q1

REPORT INFORMATION
  Report Type: Report from Study
  Country: US (occurrence: US)
  Receive Date: 20191206
  Receipt Date: 20200302
  Transmission Date: 20200409
  Serious: Yes (Other)
  Sender: FDA-Public Use
  Company Number: NVSC2019US058431

PATIENT
  Age: 84 Year
  Sex: Female

DRUGS (2)
  1. BEOVU [Suspect]
     Active Substance: BROLUCIZUMAB-DBLL
     Indication: NEOVASCULAR AGE-RELATED MACULAR DEGENERATION
     Dosage: 6 MG (ONE SINGLE DOSE VIAL) (BATCH NUMBER WAS NOT REPORTED)
     Route: 047
     Dates: start: 20191029
  2. BEOVU [Suspect]
     Active Substance: BROLUCIZUMAB-DBLL
     Dosage: 6 MG (ONE SINGLE DOSE VIAL) (BATCH NUMBER WAS NOT REPORTED)
     Route: 047
     Dates: start: 20200107

REACTIONS (4)
  - Blindness transient [Recovered/Resolved]
  - Foreign body in eye [Unknown]
  - Visual impairment [Unknown]
  - Fatigue [Unknown]

NARRATIVE: CASE EVENT DATE: 20191123
